FAERS Safety Report 6716220-7 (Version None)
Quarter: 2010Q2

REPORT INFORMATION
  Report Type: 
  Country: None (occurrence: None)
  Receive Date: 20100506
  Receipt Date: 20100506
  Transmission Date: 20101027
  Serious: Yes (Hospitalization)
  Sender: FDA-Public Use
  Company Number: None

PATIENT
  Age: 13 Year
  Sex: Male
  Weight: 49.8957 kg

DRUGS (5)
  1. ABILIFY [Suspect]
     Indication: ABNORMAL BEHAVIOUR
     Dosage: 10 MGS BID PO
     Route: 048
  2. ABILIFY [Suspect]
     Indication: AUTISM
     Dosage: 10 MGS BID PO
     Route: 048
  3. INTUNIV [Concomitant]
  4. CLONIDINE [Concomitant]
  5. ZYPREXA [Concomitant]

REACTIONS (1)
  - PRIAPISM [None]
